FAERS Safety Report 18135143 (Version 1)
Quarter: 2020Q3

REPORT INFORMATION
  Report Type: Spontaneous
  Country: CN (occurrence: CN)
  Receive Date: 20200811
  Receipt Date: 20200811
  Transmission Date: 20201103
  Serious: Yes (Life-Threatening)
  Sender: FDA-Public Use
  Company Number: CN-EMD SERONO-9179796

PATIENT
  Age: 64 Year
  Sex: Male

DRUGS (9)
  1. INSULIN [Suspect]
     Active Substance: INSULIN NOS
     Dosage: 08U BID,
     Route: 058
     Dates: start: 20200719, end: 20200726
  2. GLUCOBAY [Concomitant]
     Active Substance: ACARBOSE
     Indication: TYPE 2 DIABETES MELLITUS
     Route: 048
     Dates: start: 20200717, end: 20200719
  3. DIAMICRON [Concomitant]
     Active Substance: GLICLAZIDE
     Indication: TYPE 2 DIABETES MELLITUS
     Route: 048
     Dates: start: 20200717, end: 20200719
  4. INSULIN [Suspect]
     Active Substance: INSULIN NOS
     Dosage: 06U QD, IN MORNING
     Route: 058
     Dates: start: 20200719, end: 20200726
  5. INSULIN [Suspect]
     Active Substance: INSULIN NOS
     Indication: TYPE 2 DIABETES MELLITUS
     Dosage: 8U QD
     Route: 058
     Dates: start: 20200715, end: 20200715
  6. INSULIN [Suspect]
     Active Substance: INSULIN NOS
     Dosage: 12U QD
     Route: 058
     Dates: start: 20200717, end: 20200717
  7. INSULIN [Suspect]
     Active Substance: INSULIN NOS
     Dosage: 08U QD
     Route: 058
     Dates: start: 20200718, end: 20200718
  8. GLUCOPHAGE [Suspect]
     Active Substance: METFORMIN HYDROCHLORIDE
     Indication: TYPE 2 DIABETES MELLITUS
     Route: 048
     Dates: start: 20200719, end: 20200731
  9. INSULIN [Suspect]
     Active Substance: INSULIN NOS
     Dosage: 20U QD
     Route: 058
     Dates: start: 20200716, end: 20200716

REACTIONS (1)
  - Hypoglycaemia [Recovered/Resolved]

NARRATIVE: CASE EVENT DATE: 20200720
